FAERS Safety Report 6589982 (Version 8)
Quarter: 2013Q4

REPORT INFORMATION
  Report Type: Report from Study
  Country: US (occurrence: US)
  Receive Date: 20080320
  Receipt Date: 20131211
  Transmission Date: 20140711
  Serious: Yes (Congenital Anomaly, Other)
  Sender: FDA-Public Use
  Company Number: US-GILEAD-2008-0015687

PATIENT
  Age: 0 Day
  Sex: Male
  Weight: 2.06 kg

DRUGS (6)
  1. TRUVADA [Suspect]
     Indication: FOETAL EXPOSURE DURING PREGNANCY
     Dosage: 1 DF, QD
     Route: 064
     Dates: start: 20070827, end: 20080207
  2. TRUVADA [Suspect]
     Dosage: 300 MG, UNK
     Route: 064
     Dates: end: 20070817
  3. REYATAZ [Concomitant]
     Indication: FOETAL EXPOSURE DURING PREGNANCY
     Dosage: 300 MG, QD
     Route: 064
     Dates: start: 20070827, end: 20080207
  4. REYATAZ [Concomitant]
     Dosage: 300 MG, QD
     Route: 064
     Dates: end: 20070817
  5. RITONAVIR [Concomitant]
     Indication: FOETAL EXPOSURE DURING PREGNANCY
     Dosage: 100 MG, QD
     Route: 064
     Dates: start: 20070827, end: 20080207
  6. RITONAVIR [Concomitant]
     Dosage: 100 MG, QD
     Route: 064
     Dates: end: 20070817

REACTIONS (4)
  - Cardiac murmur [Not Recovered/Not Resolved]
  - Pulmonary artery stenosis congenital [Unknown]
  - Respiratory syncytial virus infection [Unknown]
  - Influenza [Unknown]
